FAERS Safety Report 8837103 (Version 1)
Quarter: 2012Q4

REPORT INFORMATION
  Report Type: 
  Country: BR (occurrence: BR)
  Receive Date: 20121012
  Receipt Date: 20121012
  Transmission Date: 20130627
  Serious: Yes (Hospitalization, Disabling, Other)
  Sender: FDA-Public Use
  Company Number: BR-SANOFI-AVENTIS-2012SA073797

PATIENT
  Age: 65 Year
  Sex: Female
  Weight: 85 kg

DRUGS (11)
  1. LANTUS [Suspect]
     Indication: TYPE 2 DIABETES MELLITUS
     Dosage: dose: 45 IU in the morning in fasting
start date: about 5 years ago
     Route: 058
     Dates: start: 2007
  2. AUTOPEN 24 [Suspect]
     Indication: DEVICE THERAPY
     Dosage: 8 x 0.25 mm BD needles, changed twice a week
  3. AAS [Concomitant]
     Indication: STROKE
     Route: 048
  4. CILOSTAZOL [Concomitant]
     Indication: BLOOD PRESSURE
     Route: 048
  5. DIOVANE [Concomitant]
     Indication: HYPERTENSION
     Route: 048
  6. FUROSEMIDE [Concomitant]
     Indication: RENAL DISORDER
     Route: 048
  7. NOVORAPID [Concomitant]
     Indication: TYPE 2 DIABETES MELLITUS
     Dosage: after meals
     Route: 058
  8. METHYLDOPA [Concomitant]
     Indication: HYPERTENSION
     Route: 048
  9. NIMODIPINE [Concomitant]
     Indication: HYPERTENSION
     Route: 048
  10. NIFEDIPINE [Concomitant]
     Indication: HYPERTENSION
     Route: 048
  11. SIMVASTATIN [Concomitant]
     Indication: CHOLESTEROL
     Route: 048

REACTIONS (7)
  - Cerebrovascular accident [Not Recovered/Not Resolved]
  - Renal impairment [Recovering/Resolving]
  - Aphasia [Not Recovered/Not Resolved]
  - Monoplegia [Not Recovered/Not Resolved]
  - Visual impairment [Not Recovered/Not Resolved]
  - Renal disorder [Recovering/Resolving]
  - Injection site bruising [Not Recovered/Not Resolved]
